FAERS Safety Report 16609648 (Version 1)
Quarter: 2019Q3

REPORT INFORMATION
  Report Type: Spontaneous
  Country: JP (occurrence: JP)
  Receive Date: 20190722
  Receipt Date: 20190722
  Transmission Date: 20191004
  Serious: Yes (Hospitalization)
  Sender: FDA-Public Use
  Company Number: JP-BAYER-2019-061498

PATIENT
  Age: 42 Year
  Sex: Female

DRUGS (1)
  1. YAZ [Suspect]
     Active Substance: DROSPIRENONE\ETHINYL ESTRADIOL
     Indication: ENDOMETRIOSIS
     Dosage: UNK
     Route: 048
     Dates: start: 20160601

REACTIONS (10)
  - Dyslalia [Recovering/Resolving]
  - Product use in unapproved indication [None]
  - Cerebral infarction [Recovering/Resolving]
  - Contraindicated product administered [None]
  - Monoplegia [Recovering/Resolving]
  - Venous thrombosis limb [None]
  - Cerebral ischaemia [Recovering/Resolving]
  - Hypertension [Recovering/Resolving]
  - Cerebral artery stenosis [Recovering/Resolving]
  - Off label use [None]

NARRATIVE: CASE EVENT DATE: 2018
